FAERS Safety Report 13003921 (Version 1)
Quarter: 2016Q4

REPORT INFORMATION
  Report Type: Report from Study
  Country: US (occurrence: US)
  Receive Date: 20161206
  Receipt Date: 20161206
  Transmission Date: 20170207
  Serious: Yes (Hospitalization)
  Sender: FDA-Public Use
  Company Number: US-GILEAD-2016-0235430

PATIENT
  Age: 55 Year
  Sex: Male

DRUGS (1)
  1. LEDIPASVIR/SOFOSBUVIR [Suspect]
     Active Substance: LEDIPASVIR\SOFOSBUVIR
     Indication: CHRONIC HEPATITIS C
     Dosage: 1 DF, QD
     Route: 048
     Dates: start: 20160926

REACTIONS (11)
  - Insomnia [Not Recovered/Not Resolved]
  - Chest discomfort [Unknown]
  - Urinary tract infection [Unknown]
  - Muscle fatigue [Unknown]
  - Wound [Recovered/Resolved]
  - Asthenia [Unknown]
  - Headache [Recovered/Resolved]
  - Thinking abnormal [Unknown]
  - Dizziness [Unknown]
  - Impaired healing [Recovered/Resolved]
  - Decreased appetite [Unknown]

NARRATIVE: CASE EVENT DATE: 20160926
